FAERS Safety Report 6942716-9 (Version None)
Quarter: 2010Q3

REPORT INFORMATION
  Report Type: 
  Country: None (occurrence: None)
  Receive Date: 20100826
  Receipt Date: 20100817
  Transmission Date: 20110219
  Serious: Yes (Hospitalization)
  Sender: FDA-Public Use
  Company Number: FR-PERRIGO-10FR012275

PATIENT
  Age: 95 Year
  Sex: Female

DRUGS (1)
  1. CLOBETASOL PROPIONATE RX 0.05% 9F0 [Suspect]
     Indication: PEMPHIGOID
     Dosage: 300 G TOTAL DOSE
     Route: 061

REACTIONS (1)
  - ERYSIPELAS [None]
